FAERS Safety Report 14936406 (Version 1)
Quarter: 2018Q2

REPORT INFORMATION
  Report Type: Spontaneous
  Country: DE (occurrence: DE)
  Receive Date: 20180524
  Receipt Date: 20180524
  Transmission Date: 20180711
  Serious: Yes (Hospitalization)
  Sender: FDA-Public Use
  Company Number: DE-BIOGEN-2018BI00585269

PATIENT
  Sex: Female

DRUGS (1)
  1. TECFIDERA [Suspect]
     Active Substance: DIMETHYL FUMARATE
     Indication: MULTIPLE SCLEROSIS
     Route: 048
     Dates: start: 20140307

REACTIONS (3)
  - Dyspepsia [Not Recovered/Not Resolved]
  - Surgical failure [Not Recovered/Not Resolved]
  - Obesity [Recovered/Resolved with Sequelae]

NARRATIVE: CASE EVENT DATE: 201412
